FAERS Safety Report 19403225 (Version 1)
Quarter: 2021Q2

REPORT INFORMATION
  Report Type: Spontaneous
  Country: US (occurrence: US)
  Receive Date: 20210610
  Receipt Date: 20210610
  Transmission Date: 20210717
  Serious: Yes (Other)
  Sender: FDA-Public Use
  Company Number: None

PATIENT
  Age: 43 Year
  Sex: Female
  Weight: 88 kg

DRUGS (4)
  1. DIPHENHYDRAMINE 25 MG [Concomitant]
     Dates: start: 20210610, end: 20210610
  2. DIPHENHYDRAMINE 25 MG [Concomitant]
     Dates: start: 20210610, end: 20210610
  3. HYDROCORTISONE 100 MG [Concomitant]
     Dates: start: 20210610, end: 20210610
  4. INFLIXIMAB [Suspect]
     Active Substance: INFLIXIMAB
     Indication: CROHN^S DISEASE
     Dosage: ?          OTHER FREQUENCY:ONE TIME INFUSION;?
     Route: 041
     Dates: start: 20210610, end: 20210610

REACTIONS (5)
  - Throat irritation [None]
  - Flushing [None]
  - Tremor [None]
  - Chills [None]
  - Infusion related reaction [None]

NARRATIVE: CASE EVENT DATE: 20210610
